FAERS Safety Report 7800895-5 (Version None)
Quarter: 2011Q4

REPORT INFORMATION
  Report Type: 
  Country: None (occurrence: None)
  Receive Date: 20111006
  Receipt Date: 20110913
  Transmission Date: 20120403
  Serious: Yes (Death)
  Sender: FDA-Public Use
  Company Number: JP-GLAXOSMITHKLINE-B0681822A

PATIENT

DRUGS (1)
  1. AMBRISENTAN [Suspect]
     Indication: PORTOPULMONARY HYPERTENSION
     Dosage: 2.5 MG, BID
     Route: 048
     Dates: start: 20101006, end: 20101012

REACTIONS (2)
  - HEPATIC CIRRHOSIS [None]
  - DEATH [None]
